FAERS Safety Report 9486329 (Version 1)
Quarter: 2013Q3

REPORT INFORMATION
  Report Type: Spontaneous
  Country: US (occurrence: US)
  Receive Date: 20130829
  Receipt Date: 20130829
  Transmission Date: 20140515
  Serious: No
  Sender: FDA-Public Use
  Company Number: US-PFIZER INC-2013247193

PATIENT
  Age: 47 Year
  Sex: Female

DRUGS (2)
  1. SKELAXIN [Suspect]
     Dosage: UNK
  2. HYCODANE COUGH SYRUP [Suspect]
     Dosage: UNK

REACTIONS (1)
  - Drug hypersensitivity [Unknown]
